FAERS Safety Report 20526353 (Version 1)
Quarter: 2022Q1

REPORT INFORMATION
  Report Type: Spontaneous
  Country: US (occurrence: US)
  Receive Date: 20220228
  Receipt Date: 20220228
  Transmission Date: 20220423
  Serious: No
  Sender: FDA-Public Use
  Company Number: US-SA-SAC20220221001350

PATIENT
  Sex: Male

DRUGS (2)
  1. DUPIXENT [Suspect]
     Active Substance: DUPILUMAB
     Indication: Dermatitis atopic
     Dosage: 300 MG, QOW
     Route: 058
  2. TRIAMCINOLONE [Concomitant]
     Active Substance: TRIAMCINOLONE
     Route: 061

REACTIONS (8)
  - Pruritus [Unknown]
  - Eczema [Unknown]
  - Rhinitis [Recovered/Resolved]
  - Contusion [Unknown]
  - Product dose omission issue [Unknown]
  - Skin fissures [Unknown]
  - Skin exfoliation [Unknown]
  - Sleep disorder [Unknown]
